FAERS Safety Report 5960801-5 (Version None)
Quarter: 2008Q4

REPORT INFORMATION
  Report Type: 
  Country: None (occurrence: None)
  Receive Date: 20081120
  Receipt Date: 20081112
  Transmission Date: 20090506
  Serious: Yes (Other)
  Sender: FDA-Public Use
  Company Number: GB-RANBAXY-2008RR-18223

PATIENT
  Age: 19 Year
  Sex: Male

DRUGS (2)
  1. ISOTRETINOIN [Suspect]
     Indication: ACNE
     Dosage: 80 MG, QD
  2. PREDNISOLONE [Concomitant]
     Dosage: 20 MG, QD

REACTIONS (3)
  - ABDOMINAL PAIN [None]
  - FOLLICULITIS [None]
  - PYODERMA GANGRENOSUM [None]
